FAERS Safety Report 12498342 (Version 2)
Quarter: 2016Q4

REPORT INFORMATION
  Report Type: Spontaneous
  Country: JP (occurrence: JP)
  Receive Date: 20160627
  Receipt Date: 20161005
  Transmission Date: 20170207
  Serious: Yes (Other)
  Sender: FDA-Public Use
  Company Number: JP-TEVA-671042ACC

PATIENT
  Age: 87 Year
  Sex: Male

DRUGS (14)
  1. PIRARUBICIN HYDROCHLORIDE [Suspect]
     Active Substance: PIRARUBICIN HYDROCHLORIDE
     Indication: MANTLE CELL LYMPHOMA
     Route: 042
     Dates: start: 20121218, end: 20130227
  2. RITUXIMAB [Suspect]
     Active Substance: RITUXIMAB
     Dosage: (PER 4 WEEKS)
     Route: 041
     Dates: start: 20130422
  3. RITUXIMAB [Suspect]
     Active Substance: RITUXIMAB
     Dosage: (PER 4 WEEKS)
     Route: 041
     Dates: start: 20130527
  4. BENDAMUSTINE HYDROCHLORIDE. [Suspect]
     Active Substance: BENDAMUSTINE HYDROCHLORIDE
     Dosage: (2/4 WEEKS)
     Route: 042
     Dates: start: 20130527, end: 20130528
  5. BENDAMUSTINE HYDROCHLORIDE. [Suspect]
     Active Substance: BENDAMUSTINE HYDROCHLORIDE
     Indication: MANTLE CELL LYMPHOMA
     Dosage: (2/4 WEEKS)
     Route: 042
     Dates: start: 20130321, end: 20130322
  6. BENDAMUSTINE HYDROCHLORIDE. [Suspect]
     Active Substance: BENDAMUSTINE HYDROCHLORIDE
     Dosage: (2/4 WEEKS)
     Route: 042
     Dates: start: 20130624, end: 20130625
  7. PREDNISOLONE ACETATE. [Suspect]
     Active Substance: PREDNISOLONE ACETATE
     Indication: MANTLE CELL LYMPHOMA
     Route: 042
     Dates: start: 20121218, end: 20130227
  8. VINCRISTINE SULFATE. [Suspect]
     Active Substance: VINCRISTINE SULFATE
     Indication: MANTLE CELL LYMPHOMA
     Route: 042
     Dates: start: 20121218, end: 20130227
  9. LANSOPRAZOLE. [Concomitant]
     Active Substance: LANSOPRAZOLE
     Indication: PROPHYLAXIS AGAINST GASTROINTESTINAL ULCER
     Dosage: 15 MILLIGRAM DAILY;
     Route: 048
     Dates: start: 201211
  10. RITUXIMAB [Suspect]
     Active Substance: RITUXIMAB
     Indication: MANTLE CELL LYMPHOMA
     Dosage: (PER 4 WEEKS)
     Route: 041
     Dates: start: 20130321
  11. CYCLOPHOSPHAMIDE MONOHYDRATE [Suspect]
     Active Substance: CYCLOPHOSPHAMIDE
     Indication: MANTLE CELL LYMPHOMA
     Route: 042
     Dates: start: 20121218, end: 20130227
  12. BENDAMUSTINE HYDROCHLORIDE. [Suspect]
     Active Substance: BENDAMUSTINE HYDROCHLORIDE
     Dosage: (2/4 WEEKS)
     Route: 042
     Dates: start: 20130422, end: 20130423
  13. RITUXIMAB [Suspect]
     Active Substance: RITUXIMAB
     Dosage: (PER 4 WEEKS)
     Route: 041
     Dates: start: 20130624
  14. ASPIRIN. [Concomitant]
     Active Substance: ASPIRIN
     Indication: ARTERIAL THROMBOSIS
     Dosage: 100 MILLIGRAM DAILY;
     Route: 048
     Dates: start: 201211

REACTIONS (3)
  - Chronic myelomonocytic leukaemia [Not Recovered/Not Resolved]
  - Acute myeloid leukaemia [Not Recovered/Not Resolved]
  - Prescribed underdose [Unknown]

NARRATIVE: CASE EVENT DATE: 20151119
